FAERS Safety Report 25949762 (Version 1)
Quarter: 2025Q4

REPORT INFORMATION
  Report Type: Spontaneous
  Country: US (occurrence: US)
  Receive Date: 20251022
  Receipt Date: 20251022
  Transmission Date: 20260118
  Serious: Yes (Disabling, Other)
  Sender: REGENERON
  Company Number: US-REGENERON PHARMACEUTICALS, INC.-2025-157042

PATIENT
  Sex: Female

DRUGS (2)
  1. EYLEA HD [Suspect]
     Active Substance: AFLIBERCEPT
     Indication: Product used for unknown indication
     Dosage: UNK, BOTH EYES (FORMULATION: HD VIAL)
     Route: 031
  2. EYLEA HD [Suspect]
     Active Substance: AFLIBERCEPT
     Dosage: UNK, LEFT EYE, (FORMULATION: HD VIAL)
     Route: 031
     Dates: start: 20250924, end: 20250924

REACTIONS (3)
  - Blindness unilateral [Unknown]
  - Non-infectious endophthalmitis [Unknown]
  - Eye injury [Unknown]

NARRATIVE: CASE EVENT DATE: 20250925
